FAERS Safety Report 16685678 (Version 4)
Quarter: 2020Q2

REPORT INFORMATION
  Report Type: Spontaneous
  Country: US (occurrence: US)
  Receive Date: 20190809
  Receipt Date: 20200526
  Transmission Date: 20200713
  Serious: Yes (Hospitalization, Other)
  Sender: FDA-Public Use
  Company Number: US-SA-2019SA212348

PATIENT
  Age: 48 Year
  Sex: Female

DRUGS (1)
  1. DUPIXENT [Suspect]
     Active Substance: DUPILUMAB
     Indication: ASTHMA
     Dosage: 300 MG, QOW
     Route: 058
     Dates: start: 201903

REACTIONS (7)
  - Multiple fractures [Unknown]
  - Dizziness [Unknown]
  - Spinal fracture [Unknown]
  - Ankle fracture [Unknown]
  - Dyspnoea [Unknown]
  - Surgery [Unknown]
  - Impaired healing [Unknown]

NARRATIVE: CASE EVENT DATE: 202005
